FAERS Safety Report 9364908 (Version 5)
Quarter: 2013Q4

REPORT INFORMATION
  Report Type: Spontaneous
  Country: US (occurrence: US)
  Receive Date: 20130624
  Receipt Date: 20131210
  Transmission Date: 20140711
  Serious: Yes (Hospitalization, Other)
  Sender: FDA-Public Use
  Company Number: US-009507513-1306USA008992

PATIENT
  Sex: Female
  Weight: 58.5 kg

DRUGS (8)
  1. FOSAMAX [Suspect]
     Indication: OSTEOPENIA
     Dosage: 70 MG, QW
     Route: 048
     Dates: start: 20050524, end: 20110624
  2. ALENDRONATE SODIUM [Suspect]
     Dosage: 70 MG, QW
     Route: 048
  3. PRILOSEC [Concomitant]
     Indication: DYSPEPSIA
     Dosage: 20 MG, QD
     Dates: start: 2003
  4. PREDNISONE [Concomitant]
     Indication: POLYMYOSITIS
     Dosage: 5 MG, QD
     Dates: start: 1990
  5. LIPITOR [Concomitant]
     Indication: BLOOD CHOLESTEROL INCREASED
     Dosage: 40 MG, QD
     Dates: start: 2003
  6. VITAMINS (UNSPECIFIED) [Concomitant]
     Dosage: UNK
     Dates: start: 1990
  7. LEVOTHYROXINE SODIUM [Concomitant]
     Indication: HYPOTHYROIDISM
     Dosage: 75 UNK, UNK
  8. OMEPRAZOLE [Concomitant]
     Dosage: UNK
     Dates: start: 2003

REACTIONS (28)
  - Femur fracture [Recovering/Resolving]
  - Clavicle fracture [Unknown]
  - Intramedullary rod insertion [Unknown]
  - Anaemia postoperative [Unknown]
  - Intramedullary rod insertion [Unknown]
  - Femur fracture [Recovering/Resolving]
  - Fall [Unknown]
  - Rotator cuff syndrome [Unknown]
  - Low turnover osteopathy [Unknown]
  - Osteoporosis [Unknown]
  - Incontinence [Unknown]
  - Depression [Unknown]
  - Osteoarthritis [Unknown]
  - Tendonitis [Unknown]
  - Anxiety [Unknown]
  - Fatigue [Unknown]
  - Bone contusion [Unknown]
  - Meniscus injury [Unknown]
  - Tendonitis [Unknown]
  - Joint effusion [Unknown]
  - Synovial cyst [Unknown]
  - Tonsillectomy [Unknown]
  - Vaginal cyst excision [Unknown]
  - Tendon sheath incision [Unknown]
  - Enthesopathy [Unknown]
  - Biopsy breast [Unknown]
  - Exostosis [Unknown]
  - Arthralgia [Unknown]
